FAERS Safety Report 24882121 (Version 1)
Quarter: 2025Q1

REPORT INFORMATION
  Report Type: Spontaneous
  Country: US (occurrence: US)
  Receive Date: 20250124
  Receipt Date: 20250124
  Transmission Date: 20250408
  Serious: Yes (Life-Threatening, Other)
  Sender: HETERO
  Company Number: US-AMAROX PHARMA-HET2025US00217

PATIENT
  Age: 81 Year
  Sex: Female

DRUGS (3)
  1. LORATADINE [Suspect]
     Active Substance: LORATADINE
     Indication: Product used for unknown indication
     Route: 065
  2. APIXABAN [Suspect]
     Active Substance: APIXABAN
     Indication: Atrial fibrillation
     Route: 065
  3. METOPROLOL SUCCINATE [Concomitant]
     Active Substance: METOPROLOL SUCCINATE
     Indication: Atrial fibrillation
     Route: 065

REACTIONS (6)
  - Foreign body [Recovered/Resolved]
  - Acute myocardial infarction [Unknown]
  - Pneumonia aspiration [Unknown]
  - Haematemesis [Recovered/Resolved]
  - Oesophagitis [Unknown]
  - Intercepted product administration error [Unknown]
